FAERS Safety Report 16828936 (Version 1)
Quarter: 2019Q3

REPORT INFORMATION
  Report Type: Spontaneous
  Country: DK (occurrence: DK)
  Receive Date: 20190919
  Receipt Date: 20190919
  Transmission Date: 20191005
  Serious: Yes (Other)
  Sender: FDA-Public Use
  Company Number: DK-MYLANLABS-2019M1087524

PATIENT
  Age: 36 Year
  Sex: Female

DRUGS (2)
  1. CABERGOLINE. [Suspect]
     Active Substance: CABERGOLINE
     Indication: PROLACTIN-PRODUCING PITUITARY TUMOUR
     Dosage: 0.5 MG, QW
  2. BROMOCRIPTINE [Suspect]
     Active Substance: BROMOCRIPTINE
     Indication: PRODUCT USED FOR UNKNOWN INDICATION
     Dosage: 2.5 MG, QD

REACTIONS (7)
  - Pulmonary hypertension [Unknown]
  - Pulmonary artery occlusion [Unknown]
  - Pulmonary function test decreased [Unknown]
  - Cardiac murmur [Unknown]
  - Pulmonary artery stenosis [Unknown]
  - Pulmonary fibrosis [Unknown]
  - Breath sounds abnormal [Unknown]
